FAERS Safety Report 9622388 (Version 1)
Quarter: 2013Q4

REPORT INFORMATION
  Report Type: Spontaneous
  Country: US (occurrence: None)
  Receive Date: 20131010
  Receipt Date: 20131010
  Transmission Date: 20140711
  Serious: Yes (Other)
  Sender: FDA-Public Use
  Company Number: 001607019A

PATIENT
  Age: 31 Year
  Sex: Female

DRUGS (5)
  1. PROACTIVE RENEWING CLEANSER [Suspect]
     Indication: ACNE
     Dosage: ONCE DAILY DERMAL
     Dates: start: 20130826, end: 20130827
  2. PROACTIVE REPAIRING TREATMENT [Suspect]
     Indication: ACNE
     Dosage: ONCE DAILY DERMAL
     Dates: start: 20130826, end: 20130827
  3. PROACTIVE DARK SPOT CORRECTOR [Suspect]
     Indication: ACNE
     Dosage: ONCE DAILY DERMAL
     Dates: start: 20130826, end: 20130827
  4. PAROXETINE [Concomitant]
  5. CLONAZEPAM [Concomitant]

REACTIONS (4)
  - Erythema [None]
  - Pruritus [None]
  - Eye swelling [None]
  - Swelling face [None]
